FAERS Safety Report 11857447 (Version 2)
Quarter: 2015Q4

REPORT INFORMATION
  Report Type: Spontaneous
  Country: CA (occurrence: CA)
  Receive Date: 20151221
  Receipt Date: 20151231
  Transmission Date: 20160305
  Serious: Yes (Disabling)
  Sender: FDA-Public Use
  Company Number: CA-PFIZER INC-2015421451

PATIENT
  Age: 44 Year
  Sex: Male
  Weight: 77 kg

DRUGS (19)
  1. ACETAMINOPHEN. [Concomitant]
     Active Substance: ACETAMINOPHEN
     Dosage: 1000 MG, 4X/DAY
  2. VITAMIN D [Concomitant]
     Active Substance: CHOLECALCIFEROL
     Dosage: 10000 IU, WEEKLY
  3. FORZA-10 [Concomitant]
     Dosage: UNK, DAILY
  4. PREGABALINE [Concomitant]
     Active Substance: PREGABALIN
     Dosage: 150 MG, 3X/DAY
  5. SILDENAFIL. [Concomitant]
     Active Substance: SILDENAFIL
     Dosage: 100 MG, AS NEEDED
  6. LIORESAL [Concomitant]
     Active Substance: BACLOFEN
     Dosage: UNK
  7. OXAZEPAM. [Concomitant]
     Active Substance: OXAZEPAM
     Dosage: 30 MG, 1XDAILY AT BEDTIME
  8. TRAZODONE [Concomitant]
     Active Substance: TRAZODONE HYDROCHLORIDE
     Dosage: 50 TO 100 MG AT BEDTIME, AS NEEDED
  9. SENNOSIDES. [Concomitant]
     Active Substance: SENNOSIDES
     Dosage: 25.8 MG, DAILY AS NEEDED
  10. DOCUSATE [Concomitant]
     Active Substance: DOCUSATE
     Dosage: 200 MG, 2X/DAY
  11. CLONAZEPAM. [Concomitant]
     Active Substance: CLONAZEPAM
     Dosage: 0.5 MG, AS NEEDED
  12. LACTULOSE. [Concomitant]
     Active Substance: LACTULOSE
     Dosage: 30 ML AS NEEDED
  13. ZOLOFT [Suspect]
     Active Substance: SERTRALINE HYDROCHLORIDE
     Indication: DEPRESSION
     Dosage: 200 MG, 1X/DAY (AT DINNER TIME)
     Route: 048
     Dates: start: 20141020
  14. PROLIA [Concomitant]
     Active Substance: DENOSUMAB
     Dosage: 60 MG, EVERY 6 MONTHS
     Route: 058
  15. PANTOPRAZOLE [Concomitant]
     Active Substance: PANTOPRAZOLE SODIUM
     Dosage: 40 MG, DAILY
  16. NAPROXEN. [Concomitant]
     Active Substance: NAPROXEN
     Dosage: 500 MG, 2X/DAY
  17. CALCIUM [Concomitant]
     Active Substance: CALCIUM
     Dosage: 500 MG, 2X/DAY
  18. STATEX [Concomitant]
     Active Substance: MORPHINE SULFATE
     Dosage: 5 TO 10 MG EVERY 4 HOURS AS NEEDED
  19. SEROQUEL XR [Concomitant]
     Active Substance: QUETIAPINE FUMARATE
     Dosage: 300 MG, 1XDAILY AT DINNER

REACTIONS (5)
  - Glossodynia [Not Recovered/Not Resolved]
  - Sensory loss [Not Recovered/Not Resolved]
  - Burning sensation [Not Recovered/Not Resolved]
  - Ageusia [Not Recovered/Not Resolved]
  - Product physical issue [Not Recovered/Not Resolved]

NARRATIVE: CASE EVENT DATE: 20151115
